FAERS Safety Report 20769173 (Version 1)
Quarter: 2022Q2

REPORT INFORMATION
  Report Type: Spontaneous
  Country: FR (occurrence: FR)
  Receive Date: 20220429
  Receipt Date: 20220429
  Transmission Date: 20220721
  Serious: Yes (Other)
  Sender: FDA-Public Use
  Company Number: FR-SLATE RUN PHARMACEUTICALS-22FR001062

PATIENT

DRUGS (3)
  1. EPLERENONE [Suspect]
     Active Substance: EPLERENONE
     Indication: Cardiac failure chronic
     Dosage: 25 MILLIGRAM
  2. FUROSEMIDE [Suspect]
     Active Substance: FUROSEMIDE
     Indication: Cardiac failure chronic
     Dosage: 40 MILLIGRAM
  3. FUROSEMIDE [Suspect]
     Active Substance: FUROSEMIDE
     Dosage: 120 MILLIGRAM

REACTIONS (5)
  - Drug ineffective [Unknown]
  - Hepatomegaly [Unknown]
  - Dyspnoea [Unknown]
  - Weight increased [Recovered/Resolved]
  - Ascites [Unknown]
